FAERS Safety Report 6845106-2 (Version None)
Quarter: 2010Q3

REPORT INFORMATION
  Report Type: 
  Country: None (occurrence: None)
  Receive Date: 20100715
  Receipt Date: 20070811
  Transmission Date: 20110219
  Serious: No
  Sender: FDA-Public Use
  Company Number: US-PFIZER INC-2007067655

PATIENT
  Sex: Female
  Weight: 51.8 kg

DRUGS (5)
  1. CHANTIX [Suspect]
     Indication: SMOKING CESSATION THERAPY
     Dates: start: 20070803
  2. SYNTHROID [Concomitant]
  3. FLONASE [Concomitant]
  4. NEXIUM [Concomitant]
  5. IBANDRONATE SODIUM [Concomitant]

REACTIONS (3)
  - BLOOD CHOLESTEROL INCREASED [None]
  - DYSGEUSIA [None]
  - NAUSEA [None]
